FAERS Safety Report 9068335 (Version 1)
Quarter: 2013Q1

REPORT INFORMATION
  Report Type: Spontaneous
  Country: US (occurrence: None)
  Receive Date: 20130212
  Receipt Date: 20130212
  Transmission Date: 20140127
  Serious: Yes (Death, Other)
  Sender: FDA-Public Use
  Company Number: None

PATIENT
  Age: 23 Year
  Sex: Male
  Weight: 96.62 kg

DRUGS (2)
  1. METHADONE SUSPENSION [Suspect]
     Indication: DRUG DEPENDENCE
     Route: 048
     Dates: start: 20120718, end: 20120721
  2. METHADONE SUSPENSION [Suspect]
     Indication: PAIN MANAGEMENT
     Route: 048
     Dates: start: 20120718, end: 20120721

REACTIONS (3)
  - Liver disorder [None]
  - Decreased appetite [None]
  - Toxicity to various agents [None]
